FAERS Safety Report 18688057 (Version 1)
Quarter: 2020Q4

REPORT INFORMATION
  Report Type: Spontaneous
  Country: IT (occurrence: IT)
  Receive Date: 20201231
  Receipt Date: 20201231
  Transmission Date: 20210114
  Serious: Yes (Life-Threatening)
  Sender: FDA-Public Use
  Company Number: IT-ACCORD-212672

PATIENT
  Age: 56 Year
  Sex: Male
  Weight: 72 kg

DRUGS (11)
  1. PANTOPRAZOLE [Concomitant]
     Active Substance: PANTOPRAZOLE
  2. DEURSIL [Concomitant]
     Active Substance: URSODIOL
  3. EMEND [Concomitant]
     Active Substance: APREPITANT
  4. CETIRIZINE [Concomitant]
     Active Substance: CETIRIZINE HYDROCHLORIDE
  5. SOLDESAM [Concomitant]
     Active Substance: DEXAMETHASONE
  6. LASIX [Concomitant]
     Active Substance: FUROSEMIDE
     Dosage: VIALS
  7. GEMCITABINE/GEMCITABINE HYDROCHLORIDE [Suspect]
     Active Substance: GEMCITABINE\GEMCITABINE HYDROCHLORIDE
     Indication: BILIARY NEOPLASM
     Route: 042
     Dates: start: 20200120
  8. ONDANSETRON [Concomitant]
     Active Substance: ONDANSETRON
  9. MORPHINE [Concomitant]
     Active Substance: MORPHINE
  10. CISPLATIN. [Suspect]
     Active Substance: CISPLATIN
     Indication: BILIARY NEOPLASM
     Route: 042
     Dates: start: 20200120
  11. DIAZEPAM. [Concomitant]
     Active Substance: DIAZEPAM

REACTIONS (4)
  - Off label use [Unknown]
  - Thrombocytopenia [Recovered/Resolved]
  - Neutropenia [Recovered/Resolved]
  - Leukopenia [Recovered/Resolved]

NARRATIVE: CASE EVENT DATE: 20201013
